FAERS Safety Report 9739052 (Version 2)
Quarter: 2013Q4

REPORT INFORMATION
  Report Type: Report from Study
  Country: BR (occurrence: BR)
  Receive Date: 20131209
  Receipt Date: 20131209
  Transmission Date: 20140711
  Serious: Yes (Death, Hospitalization, Other)
  Sender: FDA-Public Use
  Company Number: PHHY2013BR110600

PATIENT
  Age: 90 Year
  Sex: Male

DRUGS (3)
  1. TEGRETOL [Suspect]
     Indication: CEREBRAL ATROPHY
     Dosage: 1 DF, BID (IN THE MORNING AND AT NIGHT)
     Route: 048
     Dates: end: 20110712
  2. TEGRETOL [Suspect]
     Indication: OFF LABEL USE
  3. SPLENDIL [Concomitant]
     Indication: HYPERTENSION
     Dosage: 01 DF, DAILY
     Route: 048
     Dates: end: 20110712

REACTIONS (4)
  - Bronchopneumonia [Fatal]
  - Ischaemic cerebral infarction [Fatal]
  - Fall [Unknown]
  - Loss of consciousness [Unknown]
